FAERS Safety Report 21376560 (Version 2)
Quarter: 2022Q4

REPORT INFORMATION
  Report Type: Spontaneous
  Country: IL (occurrence: IL)
  Receive Date: 20220926
  Receipt Date: 20221008
  Transmission Date: 20230113
  Serious: Yes (Hospitalization)
  Sender: FDA-Public Use
  Company Number: IL-TEVAIL-2022-IL-2077146

PATIENT
  Age: 36 Year
  Sex: Female

DRUGS (2)
  1. METOCLOPRAMIDE [Suspect]
     Active Substance: METOCLOPRAMIDE
     Indication: Abdominal pain
     Route: 065
  2. ESOMEPRAZOLE [Suspect]
     Active Substance: ESOMEPRAZOLE
     Indication: Abdominal pain
     Route: 065

REACTIONS (4)
  - Electrocardiogram QT prolonged [Recovered/Resolved]
  - Long QT syndrome [Recovered/Resolved]
  - Arrhythmia [Recovered/Resolved]
  - Ventricular tachycardia [Recovered/Resolved]
